FAERS Safety Report 8824400 (Version 2)
Quarter: 2013Q2

REPORT INFORMATION
  Report Type: Spontaneous
  Country: US (occurrence: US)
  Receive Date: 20121004
  Receipt Date: 20130415
  Transmission Date: 20140414
  Serious: Yes (Hospitalization)
  Sender: FDA-Public Use
  Company Number: US-BAYER-2012-102337

PATIENT
  Age: 20 Year
  Sex: Female

DRUGS (3)
  1. OCELLA [Suspect]
     Dosage: UNK
     Dates: start: 20110130, end: 20110525
  2. PROVENTIL HFA [Concomitant]
     Dosage: UNK
     Dates: start: 20110504
  3. CLARITIN [Concomitant]

REACTIONS (2)
  - Pulmonary embolism [Recovered/Resolved]
  - Dyspnoea [Recovered/Resolved]
